FAERS Safety Report 4975641-3 (Version None)
Quarter: 2006Q1

REPORT INFORMATION
  Report Type: 
  Country: None (occurrence: None)
  Receive Date: 20060222
  Receipt Date: 20050308
  Transmission Date: 20060701
  Serious: Yes (Other)
  Sender: FDA-Public Use
  Company Number: HQWYE198302NOV04

PATIENT
  Age: 40 Year
  Sex: Male
  Weight: 83.99 kg

DRUGS (1)
  1. PROTONIX [Suspect]
     Dosage: UNKNOWN
     Route: 065

REACTIONS (4)
  - ACCIDENTAL EXPOSURE [None]
  - BURNING SENSATION [None]
  - DERMATITIS CONTACT [None]
  - ERYTHEMA OF EYELID [None]
